FAERS Safety Report 6241598-0 (Version None)
Quarter: 2009Q2

REPORT INFORMATION
  Report Type: 
  Country: None (occurrence: None)
  Receive Date: 20090623
  Receipt Date: 20051021
  Transmission Date: 20091009
  Serious: Yes (Hospitalization)
  Sender: FDA-Public Use
  Company Number: DE-ROCHE-387682

PATIENT
  Sex: Male
  Weight: 83 kg

DRUGS (33)
  1. DACLIZUMAB [Suspect]
     Dosage: BASELINE VISIT
     Route: 042
     Dates: start: 20041104, end: 20041104
  2. DACLIZUMAB [Suspect]
     Dosage: WEEK 2, 4, 6 AND 8 VISIT
     Route: 042
     Dates: start: 20041119
  3. MYCOPHENOLATE MOFETIL [Suspect]
     Route: 048
     Dates: start: 20041104
  4. MYCOPHENOLATE MOFETIL [Suspect]
     Route: 048
     Dates: start: 20050627
  5. PREDNISOLONE [Suspect]
     Route: 048
     Dates: start: 20040224, end: 20041103
  6. PREDNISOLONE [Suspect]
     Route: 048
     Dates: start: 20041105
  7. PREDNISOLONE [Suspect]
     Route: 048
     Dates: start: 20050224
  8. PREDNISOLONE [Suspect]
     Route: 048
     Dates: start: 20050815
  9. PREDNISOLONE [Suspect]
     Route: 042
     Dates: start: 20041104, end: 20041104
  10. TACROLIMUS [Suspect]
     Route: 048
     Dates: start: 20041104
  11. TACROLIMUS [Suspect]
     Route: 048
     Dates: start: 20050224
  12. TACROLIMUS [Suspect]
     Route: 048
     Dates: start: 20051129
  13. CYCLOSPORINE [Suspect]
     Route: 065
  14. SIROLIMUS [Suspect]
     Route: 065
  15. LOCOL [Concomitant]
     Route: 048
     Dates: start: 20041104
  16. LEVOTHYROXINE SODIUM [Concomitant]
     Route: 048
     Dates: start: 20041104
  17. ASPIRIN [Concomitant]
     Route: 048
     Dates: start: 20050224
  18. VALCYTE [Concomitant]
     Route: 048
     Dates: start: 20041104
  19. PANTOZOL [Concomitant]
     Route: 048
     Dates: start: 20041104
  20. REDUCTO-SPEZIAL [Concomitant]
     Route: 048
  21. COTRIM [Concomitant]
     Route: 048
     Dates: end: 20041129
  22. DELIX [Concomitant]
     Route: 048
     Dates: start: 20041122
  23. BAYMYCARD [Concomitant]
     Route: 048
  24. NORVASC [Concomitant]
     Route: 048
     Dates: start: 20041122
  25. CALCIMAGON-D3 [Concomitant]
  26. MAGNESIOCARD [Concomitant]
  27. BISOPROLOL FUMARATE [Concomitant]
     Route: 048
     Dates: start: 20041104
  28. ACTRAPID [Concomitant]
     Route: 058
     Dates: start: 20041206
  29. AMPICILLIN/CLOXACILLIN [Concomitant]
     Dosage: DRUG: AMPICILLIN CLAVOLANSAURE
     Route: 042
     Dates: start: 20041108
  30. DILTIAZEM [Concomitant]
     Route: 048
     Dates: start: 20041104
  31. FLUCONAZOLE [Concomitant]
     Route: 048
     Dates: start: 20041104
  32. HEPARIN [Concomitant]
     Route: 058
     Dates: start: 20041104
  33. TAMSULOSIN HCL [Concomitant]
     Route: 048
     Dates: start: 20041104

REACTIONS (3)
  - ARTHRITIS BACTERIAL [None]
  - PYREXIA [None]
  - URINARY TRACT INFECTION [None]
